FAERS Safety Report 5704816-0 (Version None)
Quarter: 2008Q2

REPORT INFORMATION
  Report Type: 
  Country: None (occurrence: None)
  Receive Date: 20080414
  Receipt Date: 20080403
  Transmission Date: 20081010
  Serious: Yes (Other)
  Sender: FDA-Public Use
  Company Number: US-PFIZER INC-2008022373

PATIENT
  Age: 45 Year
  Sex: Female

DRUGS (8)
  1. DEPO-MEDROL [Suspect]
     Indication: RESPIRATORY DISORDER
     Route: 030
     Dates: start: 20080114, end: 20080114
  2. SYNTHROID [Concomitant]
  3. PROVENTIL GENTLEHALER [Concomitant]
     Route: 055
  4. BENICAR [Concomitant]
  5. SKELAXIN [Concomitant]
  6. ULTRAM [Concomitant]
  7. MONTELUKAST SODIUM [Concomitant]
     Route: 055
  8. ADVAIR HFA [Concomitant]

REACTIONS (4)
  - ANAPHYLACTIC REACTION [None]
  - DYSPNOEA [None]
  - LIP SWELLING [None]
  - WHEEZING [None]
